FAERS Safety Report 9603219 (Version 2)
Quarter: 2013Q4

REPORT INFORMATION
  Report Type: Report from Study
  Country: FR (occurrence: FR)
  Receive Date: 20131007
  Receipt Date: 20131016
  Transmission Date: 20140711
  Serious: Yes (Death)
  Sender: FDA-Public Use
  Company Number: FR-SA-2013SA098499

PATIENT
  Age: 73 Year
  Sex: Female

DRUGS (7)
  1. CAMPATH [Suspect]
     Indication: CHRONIC LYMPHOCYTIC LEUKAEMIA
     Route: 058
     Dates: start: 20130626
  2. CAMPATH [Suspect]
     Indication: CHRONIC LYMPHOCYTIC LEUKAEMIA
     Route: 058
     Dates: start: 20130626
  3. CAMPATH [Suspect]
     Indication: CHRONIC LYMPHOCYTIC LEUKAEMIA
     Route: 058
     Dates: start: 20130727, end: 20130727
  4. CAMPATH [Suspect]
     Indication: CHRONIC LYMPHOCYTIC LEUKAEMIA
     Route: 058
     Dates: start: 20130727, end: 20130727
  5. CAMPATH [Suspect]
     Indication: CHRONIC LYMPHOCYTIC LEUKAEMIA
     Route: 058
  6. CAMPATH [Suspect]
     Indication: CHRONIC LYMPHOCYTIC LEUKAEMIA
     Route: 058
  7. DEXAMETHASONE [Concomitant]
     Indication: CHRONIC LYMPHOCYTIC LEUKAEMIA
     Dosage: EVERY 4 DAYS PER 2 WEEKS
     Route: 065

REACTIONS (1)
  - Bronchopneumonia [Fatal]
